FAERS Safety Report 8475168-0 (Version None)
Quarter: 2012Q2

REPORT INFORMATION
  Report Type: 
  Country: None (occurrence: None)
  Receive Date: 20120628
  Receipt Date: 20120628
  Transmission Date: 20120825
  Serious: Yes (Hospitalization, Other)
  Sender: FDA-Public Use
  Company Number: US-PFIZER INC-2009220896

PATIENT
  Sex: Female

DRUGS (5)
  1. VERAPAMIL HCL [Suspect]
     Indication: HYPERTENSION
     Dosage: UNK
     Dates: end: 20090301
  2. QUINAPRIL HCL [Suspect]
     Indication: HYPERTENSION
     Dosage: UNK
     Dates: end: 20090301
  3. METFORMIN [Concomitant]
     Indication: DIABETES MELLITUS
     Dosage: UNK
  4. REBIF [Suspect]
     Indication: MULTIPLE SCLEROSIS
     Dosage: 44 UG, 3 TIMES PER WEEK
     Route: 058
     Dates: start: 20071129
  5. ATACAND [Suspect]
     Indication: HYPERTENSION
     Dosage: UNK
     Dates: end: 20090301

REACTIONS (8)
  - HEADACHE [None]
  - LOSS OF CONSCIOUSNESS [None]
  - BLOOD GLUCOSE INCREASED [None]
  - RED BLOOD CELL COUNT DECREASED [None]
  - HAEMOGLOBIN DECREASED [None]
  - MULTIPLE SCLEROSIS RELAPSE [None]
  - HAEMATOCRIT DECREASED [None]
  - ORTHOSTATIC HYPOTENSION [None]
